FAERS Safety Report 8561807-2 (Version None)
Quarter: 2012Q3

REPORT INFORMATION
  Report Type: 
  Country: None (occurrence: None)
  Receive Date: 20120802
  Receipt Date: 20120718
  Transmission Date: 20120928
  Serious: Yes (Other)
  Sender: FDA-Public Use
  Company Number: CHPA2012US016828

PATIENT
  Age: 65 Year
  Sex: Female

DRUGS (3)
  1. PRILOSEC [Concomitant]
     Indication: GASTROOESOPHAGEAL REFLUX DISEASE
     Dosage: UNK, UNK
     Route: 048
  2. MIRALAX [Concomitant]
     Indication: BOWEL MOVEMENT IRREGULARITY
  3. BENEFIBER STICK PACKS [Suspect]
     Indication: HAEMORRHOIDS
     Dosage: 1 SPOONFUL DAILY
     Route: 048
     Dates: start: 20110901, end: 20110901

REACTIONS (8)
  - ANAL FISSURE [None]
  - ABDOMINAL DISCOMFORT [None]
  - OFF LABEL USE [None]
  - ABDOMINAL PAIN [None]
  - RASH [None]
  - FLATULENCE [None]
  - HAEMORRHOIDS [None]
  - IRRITABLE BOWEL SYNDROME [None]
